FAERS Safety Report 5339762-8 (Version None)
Quarter: 2007Q2

REPORT INFORMATION
  Report Type: 
  Country: None (occurrence: None)
  Receive Date: 20070531
  Receipt Date: 20070522
  Transmission Date: 20071010
  Serious: Yes (Hospitalization)
  Sender: FDA-Public Use
  Company Number: PHEH2007US07785

PATIENT
  Age: 58 Year
  Sex: Female

DRUGS (2)
  1. SYNTHROID [Concomitant]
     Route: 048
  2. ZELNORM [Suspect]
     Dosage: UNK, QD
     Route: 048
     Dates: start: 20051101, end: 20060401

REACTIONS (3)
  - CATHETERISATION CARDIAC NORMAL [None]
  - CHEST PAIN [None]
  - MYOCARDIAL INFARCTION [None]
